FAERS Safety Report 10280044 (Version 1)
Quarter: 2014Q3

REPORT INFORMATION
  Report Type: Spontaneous
  Country: US (occurrence: None)
  Receive Date: 20140701
  Receipt Date: 20140701
  Transmission Date: 20150326
  Serious: Yes (Hospitalization, Disabling)
  Sender: FDA-Public Use
  Company Number: None

PATIENT
  Age: 22 Year
  Sex: Female
  Weight: 82.56 kg

DRUGS (1)
  1. PROZAC [Suspect]
     Active Substance: FLUOXETINE HYDROCHLORIDE
     Indication: DEPRESSION
     Dosage: 1 PILL   ONCE DAILY TAKEN BY MOUTH
     Route: 048
     Dates: start: 20140612, end: 20140627

REACTIONS (4)
  - Convulsion [None]
  - Tremor [None]
  - Disturbance in attention [None]
  - Confusional state [None]

NARRATIVE: CASE EVENT DATE: 20140625
